FAERS Safety Report 7363962-9 (Version None)
Quarter: 2011Q1

REPORT INFORMATION
  Report Type: 
  Country: None (occurrence: None)
  Receive Date: 20110321
  Receipt Date: 20100517
  Transmission Date: 20110831
  Serious: Yes (Other)
  Sender: FDA-Public Use
  Company Number: US-TYCO HEALTHCARE/MALLINCKRODT-T201001278

PATIENT

DRUGS (5)
  1. ACTIQ [Concomitant]
     Dosage: UNK
     Dates: start: 20030101, end: 20050101
  2. AMBIEN CR [Concomitant]
  3. OXYCODONE [Concomitant]
  4. METHADOSE [Suspect]
     Dosage: UNK
     Dates: start: 20100101
  5. OXYCONTIN [Concomitant]

REACTIONS (1)
  - WITHDRAWAL SYNDROME [None]
